FAERS Safety Report 4333906-2 (Version None)
Quarter: 2004Q2

REPORT INFORMATION
  Report Type: 
  Country: None (occurrence: None)
  Receive Date: 20040405
  Receipt Date: 20040405
  Transmission Date: 20050107
  Serious: Yes (Hospitalization)
  Sender: FDA-Public Use
  Company Number: None

PATIENT
  Sex: Male
  Weight: 64.8644 kg

DRUGS (2)
  1. XELODA [Suspect]
     Indication: PANCREATIC CARCINOMA
     Dosage: 1600 MG/M2/DAY
     Dates: start: 20040308, end: 20040331
  2. RADIATION [Suspect]
     Dosage: 50.4 GR 28 FR
     Dates: start: 20040308, end: 20040401

REACTIONS (3)
  - BLOOD GLUCOSE INCREASED [None]
  - BLOOD SODIUM INCREASED [None]
  - DEHYDRATION [None]
